FAERS Safety Report 5167791-6 (Version None)
Quarter: 2006Q4

REPORT INFORMATION
  Report Type: 
  Country: None (occurrence: None)
  Receive Date: 20061208
  Receipt Date: 20030625
  Transmission Date: 20070319
  Serious: Yes (Life-Threatening)
  Sender: FDA-Public Use
  Company Number: PHBS2003JP06675

PATIENT
  Age: 72 Year
  Sex: Female

DRUGS (6)
  1. RISPERDAL [Concomitant]
     Indication: DELUSIONAL DISORDER, PERSECUTORY TYPE
     Dosage: 3 MG/D
     Route: 048
     Dates: start: 20021021, end: 20021125
  2. DIOVAN [Concomitant]
     Indication: BLOOD PRESSURE INCREASED
     Dosage: 40 MG/D
     Route: 048
     Dates: start: 20021021, end: 20021125
  3. MEXITIL [Concomitant]
     Indication: VENTRICULAR EXTRASYSTOLES
     Dosage: 200 MG/D
     Route: 048
     Dates: start: 20021115, end: 20021125
  4. LEVOFLOXACIN [Concomitant]
     Dosage: 300 MG/DAY
     Route: 048
     Dates: start: 20021122, end: 20021125
  5. SELBEX [Concomitant]
     Dosage: 150 MG/DAY
     Route: 048
     Dates: start: 20021122, end: 20021125
  6. TEGRETOL [Suspect]
     Indication: DEMENTIA ALZHEIMER'S TYPE
     Dosage: 100 MG, BID
     Route: 048
     Dates: start: 20021029, end: 20021125

REACTIONS (23)
  - ANOREXIA [None]
  - C-REACTIVE PROTEIN INCREASED [None]
  - CARDIAC FAILURE [None]
  - DERMATITIS EXFOLIATIVE [None]
  - DRUG HYPERSENSITIVITY [None]
  - EOSINOPHILIA [None]
  - EYELID OEDEMA [None]
  - GENERALISED ERYTHEMA [None]
  - GENERALISED OEDEMA [None]
  - HEPATIC ENZYME INCREASED [None]
  - HEPATOCELLULAR DAMAGE [None]
  - HUMAN HERPES VIRUS 6 SEROLOGY POSITIVE [None]
  - LYMPHOCYTE COUNT DECREASED [None]
  - LYMPHOCYTE MORPHOLOGY ABNORMAL [None]
  - LYMPHOCYTE STIMULATION TEST POSITIVE [None]
  - NEUTROPHIL COUNT DECREASED [None]
  - OLIGURIA [None]
  - PERSECUTORY DELUSION [None]
  - PRURITUS [None]
  - PYREXIA [None]
  - RASH [None]
  - SKIN TEST POSITIVE [None]
  - WHITE BLOOD CELL COUNT INCREASED [None]
